FAERS Safety Report 20897682 (Version 1)
Quarter: 2022Q2

REPORT INFORMATION
  Report Type: Spontaneous
  Country: SE (occurrence: SE)
  Receive Date: 20220531
  Receipt Date: 20220531
  Transmission Date: 20220721
  Serious: Yes (Death)
  Sender: FDA-Public Use
  Company Number: SE-BAUSCH-BL-2022-013317

PATIENT
  Age: 73 Year
  Sex: Female

DRUGS (3)
  1. CARDIZEM [Suspect]
     Active Substance: DILTIAZEM HYDROCHLORIDE
     Indication: Angina pectoris
     Dosage: 1+0+1+0, PROLONGED-RELEASE TABLET
     Route: 048
     Dates: start: 20010214
  2. METOPROLOL SUCCINATE [Suspect]
     Active Substance: METOPROLOL SUCCINATE
     Indication: Hypertension
     Route: 048
     Dates: start: 19950613
  3. METOPROLOL SUCCINATE [Suspect]
     Active Substance: METOPROLOL SUCCINATE
     Indication: Angina pectoris
     Route: 065

REACTIONS (2)
  - Hypotension [Fatal]
  - Bradycardia [Fatal]

NARRATIVE: CASE EVENT DATE: 20180501
